FAERS Safety Report 10507472 (Version 3)
Quarter: 2014Q4

REPORT INFORMATION
  Report Type: Spontaneous
  Country: JP (occurrence: JP)
  Receive Date: 20141009
  Receipt Date: 20141022
  Transmission Date: 20150528
  Serious: Yes (Hospitalization)
  Sender: FDA-Public Use
  Company Number: JP-SA-200411087JP

PATIENT
  Age: 30 Year
  Sex: Female
  Weight: 71 kg

DRUGS (16)
  1. FUROSEMIDE. [Suspect]
     Active Substance: FUROSEMIDE
     Indication: OLIGURIA
     Route: 041
  2. FUROSEMIDE. [Suspect]
     Active Substance: FUROSEMIDE
     Indication: DRUG ABUSE
     Route: 042
     Dates: start: 2002, end: 2002
  3. FUROSEMIDE. [Suspect]
     Active Substance: FUROSEMIDE
     Indication: OLIGURIA
     Route: 042
     Dates: start: 2002, end: 2002
  4. FUROSEMIDE. [Suspect]
     Active Substance: FUROSEMIDE
     Indication: OLIGURIA
     Route: 065
     Dates: start: 199808
  5. FUROSEMIDE. [Suspect]
     Active Substance: FUROSEMIDE
     Indication: OLIGURIA
     Route: 048
     Dates: start: 2002, end: 20020730
  6. FUROSEMIDE. [Suspect]
     Active Substance: FUROSEMIDE
     Indication: DRUG ABUSE
     Route: 042
     Dates: start: 2002, end: 2002
  7. FUROSEMIDE. [Suspect]
     Active Substance: FUROSEMIDE
     Indication: DRUG ABUSE
     Route: 048
     Dates: start: 2002, end: 20020730
  8. POTASSIUM CHLORIDE. [Concomitant]
     Active Substance: POTASSIUM CHLORIDE
     Indication: HYPOKALAEMIA
     Route: 042
     Dates: start: 2002
  9. FUROSEMIDE. [Suspect]
     Active Substance: FUROSEMIDE
     Indication: OLIGURIA
     Route: 042
     Dates: start: 2002, end: 2002
  10. FUROSEMIDE. [Suspect]
     Active Substance: FUROSEMIDE
     Indication: DRUG ABUSE
     Route: 041
     Dates: start: 2002, end: 20020630
  11. FUROSEMIDE. [Suspect]
     Active Substance: FUROSEMIDE
     Indication: DRUG ABUSE
     Route: 041
  12. FUROSEMIDE. [Suspect]
     Active Substance: FUROSEMIDE
     Indication: DRUG ABUSE
     Route: 065
     Dates: start: 199808
  13. PREDNISOLONE. [Concomitant]
     Active Substance: PREDNISOLONE
     Indication: GLOMERULONEPHRITIS CHRONIC
     Dates: start: 199507
  14. FUROSEMIDE. [Suspect]
     Active Substance: FUROSEMIDE
     Indication: OLIGURIA
     Route: 041
     Dates: start: 2002, end: 20020630
  15. POTASSIUM CHLORIDE. [Concomitant]
     Active Substance: POTASSIUM CHLORIDE
     Indication: HYPOKALAEMIA
     Dates: start: 199808
  16. POTASSIUM CHLORIDE. [Concomitant]
     Active Substance: POTASSIUM CHLORIDE
     Indication: HYPOKALAEMIA
     Dates: end: 20020813

REACTIONS (10)
  - Pseudo-Bartter syndrome [Recovering/Resolving]
  - Hypokalaemia [Recovered/Resolved]
  - Chest discomfort [Unknown]
  - Urine sodium increased [Recovering/Resolving]
  - Blood aldosterone increased [Recovered/Resolved]
  - Urine chloride increased [Recovering/Resolving]
  - Renin increased [Unknown]
  - Abdominal pain [Unknown]
  - Urine potassium increased [Recovering/Resolving]
  - Drug abuse [Unknown]
